FAERS Safety Report 12662212 (Version 2)
Quarter: 2016Q3

REPORT INFORMATION
  Report Type: Report from Study
  Country: US (occurrence: US)
  Receive Date: 20160817
  Receipt Date: 20160822
  Transmission Date: 20161109
  Serious: Yes (Hospitalization)
  Sender: FDA-Public Use
  Company Number: US-ABBVIE-16P-163-1698901-00

PATIENT
  Age: 28 Year
  Sex: Male

DRUGS (1)
  1. VIEKIRA PAK [Suspect]
     Active Substance: DASABUVIR\OMBITASVIR\PARITAPREVIR\RITONAVIR
     Indication: HEPATITIS C
     Route: 048
     Dates: start: 20160711, end: 20160804

REACTIONS (5)
  - Abdominal pain [Unknown]
  - Nausea [Unknown]
  - Adverse drug reaction [Unknown]
  - Hepatic enzyme increased [Unknown]
  - Vomiting [Unknown]

NARRATIVE: CASE EVENT DATE: 201608
